FAERS Safety Report 5715298-7 (Version None)
Quarter: 2008Q2

REPORT INFORMATION
  Report Type: 
  Country: None (occurrence: None)
  Receive Date: 20080423
  Receipt Date: 20080411
  Transmission Date: 20081010
  Serious: Yes (Other)
  Sender: FDA-Public Use
  Company Number: PE-PFIZER INC-2008024311

PATIENT
  Age: 53 Year
  Sex: Male

DRUGS (6)
  1. LYRICA [Suspect]
     Indication: NEURALGIA
     Dosage: DAILY DOSE:150MG
     Route: 048
     Dates: start: 20071101, end: 20080211
  2. COX-2 INHIBITORS [Concomitant]
     Indication: BACK PAIN
  3. FLECTADOL [Concomitant]
     Indication: BACK PAIN
  4. CEFTRIAXONE [Concomitant]
     Dates: start: 20080213, end: 20080214
  5. DEXAMETHASONE TAB [Concomitant]
     Dates: start: 20080213, end: 20080214
  6. KETOPROFEN [Concomitant]
     Dates: start: 20080213, end: 20080214

REACTIONS (2)
  - ATRIAL FIBRILLATION [None]
  - LUMBAR HERNIA [None]
